FAERS Safety Report 24569429 (Version 1)
Quarter: 2024Q4

REPORT INFORMATION
  Report Type: Spontaneous
  Country: US (occurrence: None)
  Receive Date: 20241030
  Receipt Date: 20241030
  Transmission Date: 20250115
  Serious: Yes (Life-Threatening, Hospitalization, Disabling)
  Sender: Public
  Company Number: None

PATIENT
  Age: 75 Year
  Sex: Male
  Weight: 94.35 kg

DRUGS (21)
  1. JARDIANCE [Suspect]
     Active Substance: EMPAGLIFLOZIN
     Indication: Type 2 diabetes mellitus
     Dosage: OTHER FREQUENCY : ONE TABLET IN THE MORNING ;?
     Route: 048
     Dates: start: 20221201, end: 202409
  2. OMEPRAZOLE [Concomitant]
  3. TAMSULOSIN [Concomitant]
     Active Substance: TAMSULOSIN
  4. DIAZEPAM [Concomitant]
     Active Substance: DIAZEPAM
  5. LASIX [Concomitant]
     Active Substance: FUROSEMIDE
  6. PROBIOTICS NOS [Concomitant]
     Active Substance: PROBIOTICS NOS
  7. BASAGLAR [Concomitant]
     Active Substance: INSULIN GLARGINE
  8. finasterido [Concomitant]
  9. ALBUTEROL [Concomitant]
     Active Substance: ALBUTEROL
  10. ERYTHROMYCIN [Concomitant]
     Active Substance: ERYTHROMYCIN
  11. fluorourecil cream [Concomitant]
  12. LOSARTAN [Concomitant]
     Active Substance: LOSARTAN
  13. NIFEDIPINE [Concomitant]
     Active Substance: NIFEDIPINE
  14. one touch test strips [Concomitant]
  15. GAS-X [Concomitant]
     Active Substance: DIMETHICONE
  16. baby asperin [Concomitant]
  17. MIRALAX [Concomitant]
     Active Substance: POLYETHYLENE GLYCOL 3350
  18. REFRESH SOLUTION NOS [Concomitant]
     Active Substance: CARBOXYMETHYLCELLULOSE SODIUM\GLYCERIN
  19. HERBALS\TURMERIC [Concomitant]
     Active Substance: HERBALS\TURMERIC
  20. VITAMIN D3 [Concomitant]
     Active Substance: CHOLECALCIFEROL
  21. onetouch ultra 2 bloodtest device [Concomitant]

REACTIONS (31)
  - Brief resolved unexplained event [None]
  - Abdominal distension [None]
  - Pulmonary mass [None]
  - Feeding disorder [None]
  - Insomnia [None]
  - Pancreatic mass [None]
  - Diabetic ketoacidosis [None]
  - Nonspecific reaction [None]
  - Asthenia [None]
  - Hypoaesthesia [None]
  - Testicular pain [None]
  - Abdominal pain [None]
  - Pain [None]
  - Arthralgia [None]
  - Dysphonia [None]
  - Vision blurred [None]
  - Somnolence [None]
  - Confusional state [None]
  - Fluid retention [None]
  - Mobility decreased [None]
  - Vertigo [None]
  - Anxiety [None]
  - Delirium [None]
  - Dysuria [None]
  - Gastrointestinal motility disorder [None]
  - Pneumonia [None]
  - Feeling cold [None]
  - Hypotension [None]
  - Hypertension [None]
  - Ear pain [None]
  - Rhinorrhoea [None]
